FAERS Safety Report 9031388 (Version 1)
Quarter: 2013Q1

REPORT INFORMATION
  Report Type: Spontaneous
  Country: JP (occurrence: JP)
  Receive Date: 20130124
  Receipt Date: 20130124
  Transmission Date: 20140127
  Serious: Yes (Other)
  Sender: FDA-Public Use
  Company Number: JP-PFIZER INC-2013029919

PATIENT
  Age: 69 Year
  Sex: Male

DRUGS (6)
  1. LIPITOR [Suspect]
     Indication: DYSLIPIDAEMIA
     Dosage: 10 MG, DAILY
     Route: 048
  2. LIPITOR [Suspect]
     Dosage: 5 MG, 1X/DAY
     Route: 048
  3. BAYASPIRIN [Concomitant]
     Dosage: UNK
  4. SERMION [Concomitant]
     Dosage: UNK
     Route: 048
  5. DOGMATYL [Concomitant]
     Dosage: UNK
  6. CLARITIN [Concomitant]
     Dosage: UNK
     Route: 048

REACTIONS (3)
  - Pharyngeal oedema [Unknown]
  - Lip swelling [Unknown]
  - Glossitis [Unknown]
